FAERS Safety Report 5084686-7 (Version None)
Quarter: 2006Q3

REPORT INFORMATION
  Report Type: 
  Country: None (occurrence: None)
  Receive Date: 20060821
  Receipt Date: 20060810
  Transmission Date: 20061208
  Serious: Yes (Hospitalization)
  Sender: FDA-Public Use
  Company Number: FR-JNJFOC-20060802773

PATIENT
  Age: 29 Year
  Sex: Female

DRUGS (6)
  1. RISPERDAL [Suspect]
     Indication: BIPOLAR DISORDER
     Route: 048
     Dates: start: 20050914, end: 20060213
  2. DEPAKOTE [Suspect]
     Route: 048
  3. DEPAKOTE [Suspect]
     Indication: BIPOLAR DISORDER
     Route: 048
  4. EFFEXOR [Suspect]
     Indication: BIPOLAR DISORDER
     Route: 048
  5. XANAX [Concomitant]
     Route: 065
  6. DAFLON [Concomitant]
     Route: 065

REACTIONS (2)
  - ALANINE AMINOTRANSFERASE INCREASED [None]
  - CYTOLYTIC HEPATITIS [None]
